FAERS Safety Report 5244741-5 (Version None)
Quarter: 2007Q1

REPORT INFORMATION
  Report Type: 
  Country: None (occurrence: None)
  Receive Date: 20070222
  Receipt Date: 20070215
  Transmission Date: 20070707
  Serious: Yes (Hospitalization)
  Sender: FDA-Public Use
  Company Number: US-BOEHRINGER INGELHEIM PHARMACEUTICALS, INC.-2007-BP-01888BP

PATIENT
  Sex: Female

DRUGS (11)
  1. MIRAPEX [Suspect]
     Indication: RESTLESS LEGS SYNDROME
     Route: 048
     Dates: start: 20070207
  2. MIRAPEX [Suspect]
     Route: 048
     Dates: start: 20060501
  3. MIRAPEX [Suspect]
     Route: 048
  4. METHADONE HCL [Suspect]
     Dates: start: 20051201
  5. OXYCONTIN [Concomitant]
     Indication: PAIN
     Route: 048
  6. NORCO [Concomitant]
     Indication: PAIN
     Route: 048
  7. TRIETHYL [Concomitant]
     Indication: PAIN
     Route: 048
  8. SOMA [Concomitant]
     Indication: PAIN
     Route: 048
  9. DOXEPIN HCL [Concomitant]
     Indication: PAIN
     Route: 048
  10. LORAZEPAM [Concomitant]
     Indication: ANXIETY
     Dates: start: 20060101
  11. LORAZEPAM [Concomitant]
     Dates: start: 20070201

REACTIONS (11)
  - ANXIETY [None]
  - BURNING SENSATION [None]
  - COMA [None]
  - CONTUSION [None]
  - ERYTHEMA [None]
  - HYPERAESTHESIA [None]
  - MUSCLE SPASMS [None]
  - NASAL CONGESTION [None]
  - PAIN IN EXTREMITY [None]
  - TENDERNESS [None]
  - TOOTH LOSS [None]
